FAERS Safety Report 19149469 (Version 1)
Quarter: 2021Q2

REPORT INFORMATION
  Report Type: Spontaneous
  Country: US (occurrence: US)
  Receive Date: 20210416
  Receipt Date: 20210416
  Transmission Date: 20210717
  Serious: No
  Sender: FDA-Public Use
  Company Number: US-PFIZER INC-2021315109

PATIENT
  Age: 65 Year
  Sex: Female
  Weight: 55.79 kg

DRUGS (2)
  1. DELTASONE [Concomitant]
     Active Substance: PREDNISONE
     Indication: ARTHRITIS
     Dosage: 5 MG, 1X/DAY (IN THE MORNING)
  2. XELJANZ XR [Suspect]
     Active Substance: TOFACITINIB CITRATE
     Dosage: 11 MG, 1X/DAY (11MG ONCE A DAY IN THE MORNING)

REACTIONS (2)
  - Pain [Unknown]
  - Fatigue [Unknown]
